FAERS Safety Report 6373092-0 (Version None)
Quarter: 2009Q3

REPORT INFORMATION
  Report Type: 
  Country: None (occurrence: None)
  Receive Date: 20090924
  Receipt Date: 20090603
  Transmission Date: 20100115
  Serious: Yes (Hospitalization)
  Sender: FDA-Public Use
  Company Number: US-ASTRAZENECA-2009UW03733

PATIENT
  Age: 10500 Day
  Sex: Male
  Weight: 104.3 kg

DRUGS (2)
  1. SEROQUEL [Suspect]
     Indication: SCHIZOPHRENIA
     Route: 048
     Dates: start: 19980303, end: 20040722
  2. ABILIFY [Concomitant]
     Dates: start: 20040324

REACTIONS (3)
  - DIABETES MELLITUS [None]
  - SCHIZOAFFECTIVE DISORDER [None]
  - SCHIZOPHRENIA [None]
